FAERS Safety Report 9404981 (Version 2)
Quarter: 2013Q4

REPORT INFORMATION
  Report Type: Spontaneous
  Country: US (occurrence: US)
  Receive Date: 20130717
  Receipt Date: 20131021
  Transmission Date: 20140711
  Serious: Yes (Death)
  Sender: FDA-Public Use
  Company Number: US-BRISTOL-MYERS SQUIBB COMPANY-18761478

PATIENT
  Age: 49 Year
  Sex: Female

DRUGS (1)
  1. YERVOY [Suspect]
     Dosage: TOTAL 2 DOSES

REACTIONS (1)
  - Intestinal perforation [Fatal]
